FAERS Safety Report 7656324-8 (Version None)
Quarter: 2011Q3

REPORT INFORMATION
  Report Type: 
  Country: None (occurrence: None)
  Receive Date: 20110804
  Receipt Date: 20110725
  Transmission Date: 20111222
  Serious: Yes (Other)
  Sender: FDA-Public Use
  Company Number: US-ROCHE-786724

PATIENT
  Sex: Male
  Weight: 95.3 kg

DRUGS (2)
  1. ACCUTANE [Suspect]
     Indication: ACNE
     Route: 065
     Dates: start: 19880101, end: 19890101
  2. ACCUTANE [Suspect]
     Route: 065
     Dates: start: 19980101

REACTIONS (10)
  - GASTROINTESTINAL DISORDER [None]
  - EMOTIONAL DISTRESS [None]
  - HAEMATOCHEZIA [None]
  - RECTAL HAEMORRHAGE [None]
  - SUICIDAL IDEATION [None]
  - INJURY [None]
  - ABDOMINAL PAIN [None]
  - COLITIS ULCERATIVE [None]
  - DEPRESSION [None]
  - INFLAMMATORY BOWEL DISEASE [None]
